FAERS Safety Report 24835728 (Version 3)
Quarter: 2025Q1

REPORT INFORMATION
  Report Type: Spontaneous
  Country: US (occurrence: US)
  Receive Date: 20250113
  Receipt Date: 20250217
  Transmission Date: 20250409
  Serious: No
  Sender: VIIV
  Company Number: US-ViiV Healthcare-120417

PATIENT
  Age: 36 Year
  Sex: Male
  Weight: 112 kg

DRUGS (3)
  1. CABOTEGRAVIR [Suspect]
     Active Substance: CABOTEGRAVIR
     Indication: Product used for unknown indication
     Route: 030
     Dates: start: 20230918
  2. CABOTEGRAVIR [Suspect]
     Active Substance: CABOTEGRAVIR
  3. CABOTEGRAVIR [Suspect]
     Active Substance: CABOTEGRAVIR

REACTIONS (2)
  - Hyperlipidaemia [Unknown]
  - Product preparation error [Unknown]

NARRATIVE: CASE EVENT DATE: 20240901
